FAERS Safety Report 7938399-1 (Version None)
Quarter: 2011Q4

REPORT INFORMATION
  Report Type: 
  Country: None (occurrence: None)
  Receive Date: 20111123
  Receipt Date: 20111118
  Transmission Date: 20120403
  Serious: Yes (Hospitalization)
  Sender: FDA-Public Use
  Company Number: US-PFIZER INC-2011282980

PATIENT
  Age: 5 Year
  Sex: Male

DRUGS (18)
  1. LISDEXAMFETAMINE [Suspect]
     Dosage: 30 MG, UNK
  2. AMPHETAMINE SULFATE [Suspect]
  3. ARIPIPRAZOLE [Suspect]
     Dosage: UNK
  4. VALPROIC ACID [Suspect]
     Dosage: 125 MG, QAM
  5. ATOMOXETINE HYDROCHLORIDE [Suspect]
     Dosage: 18 MG, QAM
  6. CLONIDINE [Suspect]
     Dosage: 0.05 MG, 3X/DAY
  7. QUETIAPINE FUMARATE [Suspect]
     Dosage: 12.5 MG, 2X/DAY
  8. ZIPRASIDONE HCL [Suspect]
     Dosage: 40 MG, UNK
  9. CHLORPROMAZINE [Suspect]
     Indication: ABNORMAL BEHAVIOUR
     Dosage: 200 MG, 1X/DAY
  10. VALPROIC ACID [Suspect]
     Dosage: 250 MG, QHS
  11. CARBAMAZEPINE [Suspect]
     Dosage: UNK
  12. CLONIDINE [Suspect]
     Dosage: 0.05 UNK, 2X/DAY
  13. METHYLPHENIDATE [Suspect]
     Dosage: UNK
  14. ILOPERIDONE [Suspect]
     Dosage: 6 MG, UNK
  15. LITHIUM [Suspect]
     Dosage: 150 MG, 2X/DAY
  16. VALPROIC ACID [Suspect]
     Dosage: 125 MG, 1X/DAY
  17. DEXTROAMPHETAMINE [Suspect]
     Dosage: 2.5 MG, 3X/DAY
  18. VALPROIC ACID [Suspect]
     Dosage: 125 MG, 2X/DAY

REACTIONS (5)
  - MOOD SWINGS [None]
  - DEVELOPMENTAL DELAY [None]
  - SYDENHAM'S CHOREA [None]
  - MOVEMENT DISORDER [None]
  - ATTENTION DEFICIT/HYPERACTIVITY DISORDER [None]
